FAERS Safety Report 9083480 (Version 1)
Quarter: 2013Q1

REPORT INFORMATION
  Report Type: Spontaneous
  Country: ID (occurrence: ID)
  Receive Date: 20130218
  Receipt Date: 20130218
  Transmission Date: 20140127
  Serious: Yes (Death)
  Sender: FDA-Public Use
  Company Number: PHHY2013ID015064

PATIENT
  Age: 48 Year
  Sex: Male

DRUGS (1)
  1. GLIVEC [Suspect]
     Indication: CHRONIC MYELOID LEUKAEMIA
     Dosage: 4 DF, DAILY
     Route: 048
     Dates: start: 201207

REACTIONS (5)
  - Death [Fatal]
  - Asthenia [Unknown]
  - Decreased appetite [Unknown]
  - Headache [Unknown]
  - Pyrexia [Unknown]
